FAERS Safety Report 8774485 (Version 1)
Quarter: 2012Q4

REPORT INFORMATION
  Report Type: Report from Study
  Country: JP (occurrence: JP)
  Receive Date: 20120907
  Receipt Date: 20120907
  Transmission Date: 20130627
  Serious: Yes (Other)
  Sender: FDA-Public Use
  Company Number: JP-VERTEX PHARMACEUTICAL INC.-AE-2012-010022

PATIENT
  Age: 48 Year
  Sex: Male

DRUGS (8)
  1. VX-950 [Suspect]
     Indication: HEPATITIS C
     Dosage: 2250 mg, qd
     Route: 048
     Dates: start: 20120329, end: 20120621
  2. PEGINTRON                          /01543001/ [Suspect]
     Indication: HEPATITIS C
     Dosage: 1.5 UNK, UNK
     Route: 058
     Dates: start: 20120329
  3. RIBAVIRIN [Concomitant]
     Dosage: 600 mg, qd
     Route: 048
     Dates: start: 20120329, end: 20120411
  4. RIBAVIRIN [Concomitant]
     Dosage: 400 mg, qd
     Route: 048
     Dates: start: 20120412, end: 20120418
  5. RIBAVIRIN [Concomitant]
     Dosage: 200 mg, qd
     Route: 048
     Dates: start: 20120419, end: 20120606
  6. RIBAVIRIN [Concomitant]
     Dosage: 400 mg, qd
     Route: 048
     Dates: start: 20120607
  7. MICARDIS [Concomitant]
     Dosage: 20 mg, qd
     Route: 048
  8. CARNACULIN                         /00088101/ [Concomitant]
     Dosage: 150 DF, UNK
     Route: 048
     Dates: start: 20120510

REACTIONS (1)
  - Retinopathy [Recovered/Resolved]
